FAERS Safety Report 4896555-3 (Version None)
Quarter: 2005Q4

REPORT INFORMATION
  Report Type: 
  Country: None (occurrence: None)
  Receive Date: 20051221
  Receipt Date: 20051018
  Transmission Date: 20060501
  Serious: No
  Sender: FDA-Public Use
  Company Number: US154794

PATIENT
  Age: 76 Year
  Sex: Male

DRUGS (8)
  1. SENSIPAR [Suspect]
     Indication: HYPERPARATHYROIDISM SECONDARY
     Dosage: 30 MG, 1 IN 1 DAY
     Dates: start: 20050906, end: 20050920
  2. EPOGEN (EPOETIN ALFA) (EPOETIN ALFA) [Concomitant]
  3. SEVELAMER HCL [Concomitant]
  4. DOXERCALCIFEROL [Concomitant]
  5. FOLIC ACID [Concomitant]
  6. VALSARTAN [Concomitant]
  7. CARVEDILOL [Concomitant]
  8. APAP TAB [Concomitant]

REACTIONS (3)
  - DYSURIA [None]
  - HALLUCINATION [None]
  - MALAISE [None]
